FAERS Safety Report 9688335 (Version 1)
Quarter: 2013Q4

REPORT INFORMATION
  Report Type: Spontaneous
  Country: US (occurrence: None)
  Receive Date: 20131113
  Receipt Date: 20131113
  Transmission Date: 20140711
  Serious: No
  Sender: FDA-Public Use
  Company Number: None

PATIENT
  Age: 40 Year
  Sex: Female

DRUGS (2)
  1. AMOXICILLIN/CLAVULANATE (AUGMENTIN) [Suspect]
     Dates: start: 20100924, end: 20110623
  2. LISINOPRIL [Suspect]
     Dates: start: 20110610, end: 20110611

REACTIONS (3)
  - Drug-induced liver injury [None]
  - Nausea [None]
  - Vomiting [None]
